FAERS Safety Report 4486518-4 (Version None)
Quarter: 2004Q4

REPORT INFORMATION
  Report Type: 
  Country: None (occurrence: None)
  Receive Date: 20041021
  Receipt Date: 20041010
  Transmission Date: 20050328
  Serious: Yes (Other)
  Sender: FDA-Public Use
  Company Number: JP-JNJFOC-20041004065

PATIENT
  Age: 39 Year
  Sex: Male

DRUGS (2)
  1. TYLENOL ARTHRITIS PAIN EXTENDED RELEASE (ACETAMINOPHEN) UNSPECIFIED [Suspect]
     Dosage: 1300 MG, 1 IN 1 TOTAL, ORAL
     Route: 048
     Dates: start: 20040930, end: 20040930
  2. EXTRA STRENGTH TYLENOL PM (ACETAMINOPHEN/DIPHENHYDRAMINE HCL) UNSPECIF [Concomitant]

REACTIONS (5)
  - BALANCE DISORDER [None]
  - CIRCULATORY COLLAPSE [None]
  - DIZZINESS [None]
  - PALPITATIONS [None]
  - TINNITUS [None]
